FAERS Safety Report 22189259 (Version 2)
Quarter: 2023Q4

REPORT INFORMATION
  Report Type: Report from Study
  Country: US (occurrence: US)
  Receive Date: 20230410
  Receipt Date: 20231113
  Transmission Date: 20240110
  Serious: Yes (Other)
  Sender: FDA-Public Use
  Company Number: US-002147023-NVSC2023US077471

PATIENT
  Sex: Female

DRUGS (1)
  1. MEKINIST [Suspect]
     Active Substance: TRAMETINIB DIMETHYL SULFOXIDE
     Indication: Blindness
     Dosage: 2 MG, QD (1 WEEK ON AND ONE WEEK OFF)
     Route: 048
     Dates: start: 202306

REACTIONS (4)
  - Blindness [Unknown]
  - Dermatitis acneiform [Unknown]
  - Product dose omission issue [Unknown]
  - Product use in unapproved indication [Unknown]
